FAERS Safety Report 8841942 (Version 2)
Quarter: 2012Q4

REPORT INFORMATION
  Report Type: 
  Country: US (occurrence: US)
  Receive Date: 20121016
  Receipt Date: 20121018
  Transmission Date: 20130627
  Serious: Yes (Hospitalization)
  Sender: FDA-Public Use
  Company Number: US-BAYER-2012-106792

PATIENT
  Age: 43 Year
  Sex: Female

DRUGS (5)
  1. YASMIN [Suspect]
     Dosage: UNK
     Dates: start: 200609, end: 201009
  2. OCELLA [Suspect]
     Dosage: UNK
     Dates: start: 200609, end: 201009
  3. MECLIZINE [Concomitant]
     Dosage: 25 mg, UNK
     Dates: start: 20100711
  4. LEXAPRO [Concomitant]
     Dosage: 10 mg, UNK
     Route: 048
     Dates: start: 20100828
  5. NORCO [Concomitant]

REACTIONS (3)
  - Pulmonary embolism [None]
  - Pulmonary embolism [None]
  - Deep vein thrombosis [None]
